FAERS Safety Report 7555407-0 (Version None)
Quarter: 2011Q2

REPORT INFORMATION
  Report Type: 
  Country: None (occurrence: None)
  Receive Date: 20110617
  Receipt Date: 20110602
  Transmission Date: 20111010
  Serious: No
  Sender: FDA-Public Use
  Company Number: US-B.I. PHARMACEUTICALS,INC./RIDGEFIELD-2011-BP-07953BP

PATIENT
  Age: 78 Year
  Sex: Female

DRUGS (3)
  1. PROCARDIA [Concomitant]
     Indication: HYPERTENSION
     Dosage: 30 MG
     Route: 048
     Dates: start: 20070101
  2. PRADAXA [Suspect]
     Indication: ATRIAL FIBRILLATION
     Dosage: 300 MG
     Route: 048
     Dates: start: 20110201
  3. ASPIRIN [Concomitant]

REACTIONS (3)
  - ASTHENIA [None]
  - ANXIETY [None]
  - WEIGHT INCREASED [None]
